FAERS Safety Report 4477242-2 (Version None)
Quarter: 2004Q4

REPORT INFORMATION
  Report Type: 
  Country: None (occurrence: None)
  Receive Date: 20041018
  Receipt Date: 20041008
  Transmission Date: 20050328
  Serious: Yes (Life-Threatening, Hospitalization, Disabling)
  Sender: FDA-Public Use
  Company Number: US-MERCK-0410USA01450

PATIENT
  Age: 76 Year
  Sex: Female

DRUGS (8)
  1. LIPITOR [Concomitant]
     Route: 065
  2. BLOOD THINNER (UNSPECIFIED) [Concomitant]
     Route: 065
  3. VASOTEC [Concomitant]
     Route: 048
  4. GLUCOTROL XL [Concomitant]
     Route: 065
  5. POTASSIUM (UNSPECIFIED) [Concomitant]
     Route: 065
  6. VIOXX [Suspect]
     Indication: ARTHRITIS
     Route: 048
     Dates: end: 20020701
  7. VIOXX [Suspect]
     Route: 048
     Dates: start: 20030501
  8. ZOLOFT [Concomitant]
     Route: 065

REACTIONS (1)
  - CEREBROVASCULAR ACCIDENT [None]
